FAERS Safety Report 8099303-1 (Version None)
Quarter: 2012Q1

REPORT INFORMATION
  Report Type: 
  Country: None (occurrence: None)
  Receive Date: 20120131
  Receipt Date: 20120125
  Transmission Date: 20120608
  Serious: Yes (Other)
  Sender: FDA-Public Use
  Company Number: IT-ASTRAZENECA-2012SE05473

PATIENT
  Sex: Female

DRUGS (1)
  1. SYMBICORT [Suspect]
     Indication: ASTHMA
     Dosage: SYMBICORT 160/4.5, PRN
     Route: 055

REACTIONS (2)
  - DRUG INEFFECTIVE [None]
  - ASTHMATIC CRISIS [None]
